FAERS Safety Report 24987252 (Version 3)
Quarter: 2025Q1

REPORT INFORMATION
  Report Type: Spontaneous
  Country: JP (occurrence: JP)
  Receive Date: 20250219
  Receipt Date: 20250331
  Transmission Date: 20250408
  Serious: Yes (Death)
  Sender: MERCK SHARP & DOHME LLC
  Company Number: JP-009507513-2255330

PATIENT
  Age: 75 Year
  Sex: Male
  Weight: 78.8 kg

DRUGS (3)
  1. KEYTRUDA [Suspect]
     Active Substance: PEMBROLIZUMAB
     Indication: Gastric cancer
     Route: 041
     Dates: start: 20241210, end: 20241210
  2. CAPECITABINE [Suspect]
     Active Substance: CAPECITABINE
     Dosage: 1800MG TWICE A DAY
     Route: 048
     Dates: start: 20241210, end: 20241210
  3. OXALIPLATIN [Suspect]
     Active Substance: OXALIPLATIN
     Route: 041
     Dates: start: 20241210, end: 20241210

REACTIONS (4)
  - Sudden death [Fatal]
  - White blood cell count decreased [Unknown]
  - Constipation [Unknown]
  - Taste disorder [Unknown]

NARRATIVE: CASE EVENT DATE: 20241211
